FAERS Safety Report 20448979 (Version 1)
Quarter: 2022Q1

REPORT INFORMATION
  Report Type: Spontaneous
  Country: US (occurrence: None)
  Receive Date: 20220208
  Receipt Date: 20220208
  Transmission Date: 20220424
  Serious: Yes (Death)
  Sender: FDA-Public Use
  Company Number: None

PATIENT
  Age: 72 Year
  Sex: Male

DRUGS (10)
  1. CAPECITABINE [Suspect]
     Active Substance: CAPECITABINE
     Indication: Gallbladder cancer
     Route: 048
     Dates: start: 20200828, end: 20220203
  2. ASPIRIN EC [Concomitant]
  3. CLOTRIM/BETA DCRE DIPROP [Concomitant]
  4. CYANOCOBALAM INJ [Concomitant]
  5. FERROUS SULF TAB EC [Concomitant]
  6. FLUZONE QUAD INJ [Concomitant]
  7. FUROSEMIDE TAB [Concomitant]
  8. IBUPROFEN [Concomitant]
  9. NOVOIN70/30 INJ RELION [Concomitant]
  10. TERAZOSIN CAP [Concomitant]

REACTIONS (1)
  - Death [None]

NARRATIVE: CASE EVENT DATE: 20220203
